FAERS Safety Report 6716020-8 (Version None)
Quarter: 2010Q2

REPORT INFORMATION
  Report Type: 
  Country: None (occurrence: None)
  Receive Date: 20100507
  Receipt Date: 20100426
  Transmission Date: 20101027
  Serious: Yes (Other)
  Sender: FDA-Public Use
  Company Number: US-SANOFI-AVENTIS-2010SA024826

PATIENT
  Sex: Male

DRUGS (3)
  1. PLAVIX [Suspect]
     Indication: CORONARY ARTERY BYPASS
     Route: 048
     Dates: start: 20030101
  2. PLAVIX [Suspect]
     Route: 048
     Dates: end: 20100423
  3. ASPIRIN [Suspect]
     Dosage: TOOK TOO MUCH (UNSPECIFIED DOSAGE)
     Route: 048

REACTIONS (5)
  - ATRIAL FIBRILLATION [None]
  - DERMABRASION [None]
  - EPISTAXIS [None]
  - HERNIA [None]
  - SKIN HAEMORRHAGE [None]
